FAERS Safety Report 13294181 (Version 1)
Quarter: 2017Q1

REPORT INFORMATION
  Report Type: Spontaneous
  Country: SE (occurrence: SE)
  Receive Date: 20170303
  Receipt Date: 20170303
  Transmission Date: 20170428
  Serious: Yes (Hospitalization)
  Sender: FDA-Public Use
  Company Number: SE-009507513-1702SWE012306

PATIENT
  Sex: Female

DRUGS (1)
  1. NASONEX [Suspect]
     Active Substance: MOMETASONE FUROATE
     Dosage: UNK (STRENGTH: 50 MICROGRAM/DOSE)

REACTIONS (3)
  - Dyspnoea [Unknown]
  - Haemoptysis [Unknown]
  - Tonsillar hypertrophy [Unknown]
